FAERS Safety Report 7722364-3 (Version None)
Quarter: 2011Q3

REPORT INFORMATION
  Report Type: 
  Country: None (occurrence: None)
  Receive Date: 20110831
  Receipt Date: 20110818
  Transmission Date: 20111222
  Serious: Yes (Hospitalization)
  Sender: FDA-Public Use
  Company Number: FR-PFIZER INC-2011200810

PATIENT
  Age: 49 Year
  Sex: Female

DRUGS (4)
  1. ATACAND [Concomitant]
     Dosage: 8 MG, 1X/DAY
     Route: 048
  2. XANAX [Concomitant]
     Dosage: 0.25 MG, 1X/DAY
  3. PROPRANOLOL [Suspect]
     Indication: TACHYCARDIA
     Dosage: 40 MG, UNK
     Route: 048
     Dates: start: 20101015, end: 20101019
  4. NEO-MERCAZOLE TAB [Concomitant]
     Indication: HYPERTHYROIDISM
     Dosage: 20 MG, 1X/DAY
     Route: 048
     Dates: start: 20101013

REACTIONS (2)
  - ERYTHEMA [None]
  - OEDEMA PERIPHERAL [None]
